FAERS Safety Report 5584483-X (Version None)
Quarter: 2008Q1

REPORT INFORMATION
  Report Type: 
  Country: None (occurrence: None)
  Receive Date: 20080103
  Receipt Date: 20071217
  Transmission Date: 20080703
  Serious: Yes (Life-Threatening)
  Sender: FDA-Public Use
  Company Number: US021984

PATIENT
  Age: 61 Year
  Sex: Male

DRUGS (5)
  1. TRISENOX [Suspect]
     Indication: ACUTE PROMYELOCYTIC LEUKAEMIA
     Dosage: 7.935 MG QD INTRAVENOUS DRIP
     Route: 041
     Dates: start: 20070806, end: 20070819
  2. TRISENOX [Suspect]
     Indication: ACUTE PROMYELOCYTIC LEUKAEMIA
     Dosage: 7.935 MG QD INTRAVENOUS DRIP
     Route: 041
     Dates: start: 20070822, end: 20070826
  3. CEFOZOPRAN HYDROCHLORIDE [Concomitant]
  4. URSODESOXYCHOLIC ACID [Concomitant]
  5. ECABET SODIUM [Concomitant]

REACTIONS (1)
  - PNEUMOCYSTIS JIROVECI PNEUMONIA [None]
